FAERS Safety Report 7358910-1 (Version None)
Quarter: 2011Q1

REPORT INFORMATION
  Report Type: 
  Country: None (occurrence: None)
  Receive Date: 20110317
  Receipt Date: 20110307
  Transmission Date: 20110831
  Serious: Yes (Other)
  Sender: FDA-Public Use
  Company Number: US-WATSON-2011-01634

PATIENT
  Sex: Female
  Weight: 65 kg

DRUGS (7)
  1. PREDNISONE [Suspect]
     Indication: INFLAMMATION
  2. KENALOG [Concomitant]
     Indication: PRODUCT USED FOR UNKNOWN INDICATION
     Dosage: UNK
     Route: 065
     Dates: start: 20100301
  3. ORAL CONTRACEPTIVE NOS [Concomitant]
     Indication: ORAL CONTRACEPTION
     Dosage: 1 TABLET, DAILY
     Route: 048
  4. PREDNISONE [Suspect]
     Indication: DERMATITIS CONTACT
     Dosage: 40 MG TAKEN OVER 9 DAYS
     Route: 048
     Dates: start: 20091201, end: 20100601
  5. XYZAL [Concomitant]
     Indication: DERMATITIS ALLERGIC
     Dosage: UNK
     Route: 065
  6. ROBAXIN [Concomitant]
     Indication: PRODUCT USED FOR UNKNOWN INDICATION
     Dosage: UNK
     Route: 065
  7. VICODIN [Concomitant]
     Indication: PRODUCT USED FOR UNKNOWN INDICATION
     Route: 065

REACTIONS (7)
  - JOINT DESTRUCTION [None]
  - BONE INFARCTION [None]
  - JOINT STIFFNESS [None]
  - ARTHRALGIA [None]
  - CHONDROPATHY [None]
  - JOINT SWELLING [None]
  - OSTEONECROSIS [None]
